FAERS Safety Report 18228281 (Version 1)
Quarter: 2020Q3

REPORT INFORMATION
  Report Type: Spontaneous
  Country: US (occurrence: US)
  Receive Date: 20200903
  Receipt Date: 20200903
  Transmission Date: 20201103
  Serious: No
  Sender: FDA-Public Use
  Company Number: US-009507513-2008USA014237

PATIENT
  Sex: Female

DRUGS (6)
  1. IMFINZI [Concomitant]
     Active Substance: DURVALUMAB
  2. CARBOPLATIN. [Concomitant]
     Active Substance: CARBOPLATIN
     Dosage: UNK
     Dates: start: 2018
  3. AROMATASE INHIBITOR (UNSPECIFIED) [Concomitant]
     Dosage: UNK
     Dates: start: 2018
  4. ALIMTA [Concomitant]
     Active Substance: PEMETREXED DISODIUM
     Dosage: UNK
     Dates: start: 2018
  5. GABAPENTIN. [Concomitant]
     Active Substance: GABAPENTIN
     Dosage: UNK
  6. KEYTRUDA [Suspect]
     Active Substance: PEMBROLIZUMAB
     Indication: LUNG NEOPLASM MALIGNANT
     Dosage: UNK
     Route: 042
     Dates: start: 201804, end: 2018

REACTIONS (4)
  - Fatigue [Unknown]
  - Osteoporosis [Unknown]
  - Weight increased [Unknown]
  - Nephropathy [Unknown]

NARRATIVE: CASE EVENT DATE: 2018
